FAERS Safety Report 7780417-8 (Version None)
Quarter: 2011Q3

REPORT INFORMATION
  Report Type: 
  Country: None (occurrence: None)
  Receive Date: 20110927
  Receipt Date: 20110916
  Transmission Date: 20111222
  Serious: Yes (Other)
  Sender: FDA-Public Use
  Company Number: US-BAYER-2011-026678

PATIENT
  Age: 20 Year
  Sex: Female
  Weight: 95.238 kg

DRUGS (10)
  1. OMEPRAZOLE [Concomitant]
     Dosage: UNK UNK, QD
  2. PHENERGAN HCL [Concomitant]
  3. PRILOSEC [Concomitant]
     Dosage: UNK UNK, QD
  4. PROAIR HFA [Concomitant]
     Indication: ASTHMA
     Dosage: UNK
     Dates: start: 19910101
  5. ATENOLOL [Concomitant]
  6. YAZ [Suspect]
     Indication: PREMENSTRUAL SYNDROME
  7. YAZ [Suspect]
  8. LOMOTIL [Concomitant]
  9. YAZ [Suspect]
     Indication: ACNE
     Dosage: UNK
     Route: 048
     Dates: start: 20070101, end: 20080101
  10. ORTHO TRI-CYCLEN [Concomitant]

REACTIONS (7)
  - BILIARY DYSKINESIA [None]
  - GALLBLADDER DISORDER [None]
  - WEIGHT INCREASED [None]
  - CHOLECYSTITIS CHRONIC [None]
  - EMOTIONAL DISTRESS [None]
  - INJURY [None]
  - PAIN [None]
